FAERS Safety Report 7945409-4 (Version None)
Quarter: 2011Q4

REPORT INFORMATION
  Report Type: 
  Country: None (occurrence: None)
  Receive Date: 20111129
  Receipt Date: 20111117
  Transmission Date: 20120403
  Serious: No
  Sender: FDA-Public Use
  Company Number: US-UCBSA-045793

PATIENT
  Age: 52 Year
  Sex: Female

DRUGS (3)
  1. METHOTREXATE [Concomitant]
     Dates: end: 20110101
  2. CIMZIA [Suspect]
     Indication: RHEUMATOID ARTHRITIS
     Route: 058
     Dates: start: 20110816, end: 20110101
  3. LIPITOR [Concomitant]
     Dates: end: 20110101

REACTIONS (2)
  - RHEUMATOID ARTHRITIS [None]
  - LIVER FUNCTION TEST ABNORMAL [None]
